FAERS Safety Report 14102479 (Version 1)
Quarter: 2017Q4

REPORT INFORMATION
  Report Type: Spontaneous
  Country: US (occurrence: None)
  Receive Date: 20171018
  Receipt Date: 20171018
  Transmission Date: 20180321
  Serious: No
  Sender: FDA-Public Use
  Company Number: None

PATIENT
  Sex: Female

DRUGS (1)
  1. OTEZLA [Suspect]
     Active Substance: APREMILAST
     Indication: PSORIASIS
     Dosage: AS DIRECTED, BY MOUTH
     Route: 048

REACTIONS (5)
  - Pain [None]
  - Diarrhoea [None]
  - Nephrolithiasis [None]
  - Laboratory test abnormal [None]
  - Vomiting [None]
